FAERS Safety Report 24282346 (Version 3)
Quarter: 2024Q4

REPORT INFORMATION
  Report Type: Spontaneous
  Country: BR (occurrence: BR)
  Receive Date: 20240904
  Receipt Date: 20241104
  Transmission Date: 20250115
  Serious: Yes (Other)
  Sender: SANDOZ
  Company Number: BR-002147023-NVSC2023BR175363

PATIENT
  Age: 56 Year
  Sex: Female

DRUGS (12)
  1. ANASTROZOLE [Suspect]
     Active Substance: ANASTROZOLE
     Indication: Product used for unknown indication
     Dosage: 1 MG
     Route: 065
  2. KISQALI [Suspect]
     Active Substance: RIBOCICLIB
     Indication: Breast cancer female
     Dosage: UNK
     Route: 065
  3. KISQALI [Suspect]
     Active Substance: RIBOCICLIB
     Dosage: UNK
     Route: 065
  4. KISQALI [Suspect]
     Active Substance: RIBOCICLIB
     Dosage: UNK
     Route: 065
     Dates: start: 20231017
  5. KISQALI [Suspect]
     Active Substance: RIBOCICLIB
     Dosage: UNK
     Route: 065
  6. KISQALI [Suspect]
     Active Substance: RIBOCICLIB
     Dosage: UNK
     Route: 065
  7. KISQALI [Suspect]
     Active Substance: RIBOCICLIB
     Dosage: 3 DOSAGE FORM, QD
     Route: 065
  8. KISQALI [Suspect]
     Active Substance: RIBOCICLIB
     Dosage: UNK
     Route: 065
  9. KISQALI [Suspect]
     Active Substance: RIBOCICLIB
     Dosage: 2 DF, QD  (OTHER - 2 TABLETS PER DAY)
     Route: 065
  10. KISQALI [Suspect]
     Active Substance: RIBOCICLIB
     Dosage: 2 DOSAGE FORM, QD
     Route: 065
  11. KISQALI [Suspect]
     Active Substance: RIBOCICLIB
     Dosage: 2 DOSAGE FORM, QD
     Route: 065
     Dates: start: 20240718
  12. KISQALI [Suspect]
     Active Substance: RIBOCICLIB
     Indication: Breast cancer
     Dosage: UNK
     Route: 065

REACTIONS (31)
  - Pulmonary fibrosis [Unknown]
  - Cardiovascular disorder [Unknown]
  - Limb discomfort [Unknown]
  - Discomfort [Unknown]
  - Restlessness [Unknown]
  - Taste disorder [Unknown]
  - Feeling hot [Unknown]
  - Blood disorder [Recovered/Resolved]
  - Pain in extremity [Unknown]
  - Blood test abnormal [Unknown]
  - Decreased immune responsiveness [Unknown]
  - Dry skin [Not Recovered/Not Resolved]
  - Pulmonary mass [Recovering/Resolving]
  - Stress [Unknown]
  - Skin discolouration [Recovered/Resolved]
  - Skin disorder [Unknown]
  - Blood disorder [Recovered/Resolved]
  - Abdominal pain [Unknown]
  - Poor venous access [Unknown]
  - Scratch [Recovered/Resolved]
  - Byssinosis [Unknown]
  - Pruritus [Recovered/Resolved]
  - Vessel puncture site pain [Unknown]
  - Arthropod sting [Unknown]
  - Breast mass [Recovering/Resolving]
  - Haematoma [Unknown]
  - Papule [Unknown]
  - Memory impairment [Unknown]
  - Headache [Unknown]
  - Arthralgia [Unknown]
  - Blood disorder [Recovered/Resolved]

NARRATIVE: CASE EVENT DATE: 20231009
